FAERS Safety Report 13539266 (Version 5)
Quarter: 2017Q3

REPORT INFORMATION
  Report Type: Spontaneous
  Country: GB (occurrence: GB)
  Receive Date: 20170512
  Receipt Date: 20170714
  Transmission Date: 20171127
  Serious: Yes (Hospitalization)
  Sender: FDA-Public Use
  Company Number: GB-TORRENT-00015247

PATIENT
  Age: 26 Year
  Sex: Female

DRUGS (10)
  1. LAMOTRIGINE. [Suspect]
     Active Substance: LAMOTRIGINE
  2. PROMETHAZINE [Suspect]
     Active Substance: PROMETHAZINE\PROMETHAZINE HYDROCHLORIDE
  3. HYOSCINE [Suspect]
     Active Substance: SCOPOLAMINE
  4. METFORMIN [Suspect]
     Active Substance: METFORMIN HYDROCHLORIDE
  5. SERTRALINE [Suspect]
     Active Substance: SERTRALINE HYDROCHLORIDE
  6. MONTELUKAST SODIUM. [Suspect]
     Active Substance: MONTELUKAST SODIUM
  7. DILTIAZEM. [Suspect]
     Active Substance: DILTIAZEM
  8. DEPAKOTE [Suspect]
     Active Substance: DIVALPROEX SODIUM
  9. ARIPIPRAZOLE. [Suspect]
     Active Substance: ARIPIPRAZOLE
  10. CLOZARIL [Suspect]
     Active Substance: CLOZAPINE

REACTIONS (1)
  - Electrocardiogram QT prolonged [Recovered/Resolved]

NARRATIVE: CASE EVENT DATE: 20170416
